FAERS Safety Report 14780403 (Version 2)
Quarter: 2019Q2

REPORT INFORMATION
  Report Type: Spontaneous
  Country: US (occurrence: US)
  Receive Date: 20180419
  Receipt Date: 20190422
  Transmission Date: 20190711
  Serious: No
  Sender: FDA-Public Use
  Company Number: US-BAUSCH-BL-2018-004645

PATIENT
  Age: 72 Year
  Sex: Female
  Weight: 98.97 kg

DRUGS (2)
  1. CICLOPIROX. [Suspect]
     Active Substance: CICLOPIROX
     Indication: FUNGAL SKIN INFECTION
     Dosage: APPLY ON SKIN TWICE A DAY?USED PRODUCT FOR 5-6 DAYS
     Route: 061
     Dates: start: 20180130, end: 201802
  2. CICLOPIROX. [Suspect]
     Active Substance: CICLOPIROX
     Indication: PRODUCT USE IN UNAPPROVED INDICATION

REACTIONS (3)
  - Rash [Recovered/Resolved]
  - Product use in unapproved indication [Unknown]
  - Inflammation [Recovered/Resolved]

NARRATIVE: CASE EVENT DATE: 20180130
